FAERS Safety Report 19674949 (Version 1)
Quarter: 2021Q3

REPORT INFORMATION
  Report Type: Spontaneous
  Country: US (occurrence: US)
  Receive Date: 20210809
  Receipt Date: 20210809
  Transmission Date: 20211014
  Serious: No
  Sender: FDA-Public Use
  Company Number: None

PATIENT
  Age: 36 Year
  Sex: Female

DRUGS (1)
  1. HUMIRA [Suspect]
     Active Substance: ADALIMUMAB
     Indication: CROHN^S DISEASE
     Dosage: ?          OTHER FREQUENCY:EVERY TWO WEEKS;?
     Route: 058
     Dates: start: 20201215

REACTIONS (9)
  - Skin fissures [None]
  - Skin haemorrhage [None]
  - Dry skin [None]
  - Skin erosion [None]
  - Skin discolouration [None]
  - Condition aggravated [None]
  - Rash [None]
  - Skin exfoliation [None]
  - Arthralgia [None]

NARRATIVE: CASE EVENT DATE: 20210809
